FAERS Safety Report 5125599-1 (Version None)
Quarter: 2006Q4

REPORT INFORMATION
  Report Type: 
  Country: None (occurrence: None)
  Receive Date: 20061006
  Receipt Date: 20060821
  Transmission Date: 20070319
  Serious: Yes (Death)
  Sender: FDA-Public Use
  Company Number: 2006-148479-NL

PATIENT
  Sex: 0

DRUGS (1)
  1. NORCURON [Suspect]
     Indication: NEUROMUSCULAR BLOCKADE
     Dosage: 0.6 MG/KG ONCE INTRAVENOUS (NOS)
     Route: 042

REACTIONS (3)
  - ATRIOVENTRICULAR BLOCK THIRD DEGREE [None]
  - DRUG DISPENSING ERROR [None]
  - INCORRECT DOSE ADMINISTERED [None]
